FAERS Safety Report 19026284 (Version 2)
Quarter: 2021Q2

REPORT INFORMATION
  Report Type: Spontaneous
  Country: JP (occurrence: JP)
  Receive Date: 20210318
  Receipt Date: 20210406
  Transmission Date: 20210717
  Serious: Yes (Hospitalization, Other)
  Sender: FDA-Public Use
  Company Number: JP-ACCORD-219998

PATIENT
  Age: 19 Year
  Sex: Male

DRUGS (1)
  1. AMITRIPTYLINE [Suspect]
     Active Substance: AMITRIPTYLINE
     Indication: DEPRESSION
     Route: 048

REACTIONS (8)
  - Cardiac arrest [Recovered/Resolved]
  - Generalised tonic-clonic seizure [Recovered/Resolved]
  - Haemodynamic instability [Recovered/Resolved]
  - Coma [Recovered/Resolved]
  - Mental disorder [Recovered/Resolved]
  - Overdose [Unknown]
  - Cardio-respiratory arrest [Recovered/Resolved]
  - Toxicity to various agents [Unknown]
